FAERS Safety Report 22661014 (Version 1)
Quarter: 2023Q2

REPORT INFORMATION
  Report Type: Spontaneous
  Country: BE (occurrence: BE)
  Receive Date: 20230630
  Receipt Date: 20230630
  Transmission Date: 20230721
  Serious: Yes (Death, Other)
  Sender: FDA-Public Use
  Company Number: BE-SUN PHARMACEUTICAL INDUSTRIES LTD-2023R1-397259

PATIENT
  Age: 44 Year
  Sex: Female

DRUGS (2)
  1. CARBOPLATIN [Suspect]
     Active Substance: CARBOPLATIN
     Indication: Metastatic malignant melanoma
     Dosage: 175 MILLIGRAM/SQ. METER
     Route: 065
  2. PACLITAXEL [Suspect]
     Active Substance: PACLITAXEL
     Indication: Metastatic malignant melanoma
     Dosage: 175 MILLIGRAM/SQ. METER
     Route: 065

REACTIONS (2)
  - Therapeutic response decreased [Unknown]
  - Death [Fatal]
